FAERS Safety Report 5317427-6 (Version None)
Quarter: 2007Q2

REPORT INFORMATION
  Report Type: 
  Country: None (occurrence: None)
  Receive Date: 20070503
  Receipt Date: 20070503
  Transmission Date: 20071010
  Serious: Yes (Death)
  Sender: FDA-Public Use
  Company Number: None

PATIENT
  Sex: Male
  Weight: 58.0604 kg

DRUGS (4)
  1. BORTEZOMIB [Suspect]
     Indication: RENAL CELL CARCINOMA STAGE UNSPECIFIED
     Dosage: 1.3 MG/M2 IVP
     Route: 042
     Dates: start: 20060313, end: 20060908
  2. BEVACIZUMAB [Suspect]
     Indication: RENAL CELL CARCINOMA STAGE UNSPECIFIED
     Dosage: 15 MG/KG IV
     Route: 042
     Dates: start: 20060313, end: 20060828
  3. MS CONTIN [Concomitant]
  4. VICODIN [Concomitant]

REACTIONS (12)
  - ASCITES [None]
  - BLOOD GLUCOSE ABNORMAL [None]
  - BLOOD GLUCOSE DECREASED [None]
  - DISEASE PROGRESSION [None]
  - GLASGOW COMA SCALE ABNORMAL [None]
  - HAEMOGLOBIN DECREASED [None]
  - METABOLIC ACIDOSIS [None]
  - METASTASES TO LIVER [None]
  - NO THERAPEUTIC RESPONSE [None]
  - PLEURAL EFFUSION [None]
  - PUPIL FIXED [None]
  - RESPIRATORY ACIDOSIS [None]
